FAERS Safety Report 5408273-3 (Version None)
Quarter: 2007Q3

REPORT INFORMATION
  Report Type: 
  Country: None (occurrence: None)
  Receive Date: 20070806
  Receipt Date: 20070726
  Transmission Date: 20080115
  Serious: Yes (Other)
  Sender: FDA-Public Use
  Company Number: 17111

PATIENT

DRUGS (4)
  1. ACYCLOVIR [Suspect]
     Indication: INFECTION
  2. FLUCONAZOLE [Suspect]
     Indication: INFECTION
  3. COTRIM [Suspect]
     Indication: INFECTION
  4. ALLOPURINOL [Suspect]
     Indication: DRUG USE FOR UNKNOWN INDICATION

REACTIONS (1)
  - TOXIC EPIDERMAL NECROLYSIS [None]
